FAERS Safety Report 24027047 (Version 1)
Quarter: 2024Q2

REPORT INFORMATION
  Report Type: Spontaneous
  Country: GB (occurrence: GB)
  Receive Date: 20240628
  Receipt Date: 20240628
  Transmission Date: 20240716
  Serious: Yes (Disabling, Other)
  Sender: FDA-Public Use
  Company Number: None

PATIENT
  Age: 68 Year
  Sex: Female
  Weight: 49 kg

DRUGS (1)
  1. LEVOTHYROXINE [Suspect]
     Active Substance: LEVOTHYROXINE\LEVOTHYROXINE SODIUM
     Indication: Hypothyroidism
     Route: 065
     Dates: start: 2020

REACTIONS (6)
  - Tremor [Not Recovered/Not Resolved]
  - Increased appetite [Not Recovered/Not Resolved]
  - Anxiety [Not Recovered/Not Resolved]
  - Hypotension [Not Recovered/Not Resolved]
  - Heart rate increased [Not Recovered/Not Resolved]
  - Hot flush [Not Recovered/Not Resolved]

NARRATIVE: CASE EVENT DATE: 20240423
